FAERS Safety Report 14517632 (Version 3)
Quarter: 2018Q2

REPORT INFORMATION
  Report Type: Spontaneous
  Country: US (occurrence: US)
  Receive Date: 20180212
  Receipt Date: 20180409
  Transmission Date: 20180711
  Serious: No
  Sender: FDA-Public Use
  Company Number: US-PFIZER INC-2018055461

PATIENT
  Sex: Female

DRUGS (1)
  1. METHOTREXATE SODIUM. [Suspect]
     Active Substance: METHOTREXATE SODIUM
     Indication: RHEUMATOID ARTHRITIS
     Dosage: 10 MG, WEEKLY (MAXIMUM TITRATED DOSE)

REACTIONS (4)
  - Drug effect incomplete [Unknown]
  - Drug intolerance [Unknown]
  - Abdominal discomfort [Unknown]
  - Alopecia [Recovering/Resolving]
